FAERS Safety Report 7647549-6 (Version None)
Quarter: 2011Q3

REPORT INFORMATION
  Report Type: 
  Country: None (occurrence: None)
  Receive Date: 20110801
  Receipt Date: 20110720
  Transmission Date: 20111222
  Serious: Yes (Hospitalization)
  Sender: FDA-Public Use
  Company Number: US-UCBSA-037439

PATIENT
  Sex: Male
  Weight: 112.9 kg

DRUGS (1)
  1. KEPPRA XR [Suspect]
     Indication: CONVULSION
     Route: 048
     Dates: start: 20100701

REACTIONS (3)
  - SUICIDE ATTEMPT [None]
  - WRONG TECHNIQUE IN DRUG USAGE PROCESS [None]
  - INAPPROPRIATE SCHEDULE OF DRUG ADMINISTRATION [None]
